FAERS Safety Report 18067177 (Version 2)
Quarter: 2021Q1

REPORT INFORMATION
  Report Type: Spontaneous
  Country: US (occurrence: US)
  Receive Date: 20200724
  Receipt Date: 20210131
  Transmission Date: 20210419
  Serious: Yes (Other)
  Sender: FDA-Public Use
  Company Number: US-PURDUE-USA-2020-0158938

PATIENT

DRUGS (1)
  1. OXYCONTIN [Suspect]
     Active Substance: OXYCODONE HYDROCHLORIDE
     Indication: PRODUCT USED FOR UNKNOWN INDICATION
     Dosage: 80 MG, UNK
     Route: 048
     Dates: start: 1996, end: 2018

REACTIONS (12)
  - Aggression [Unknown]
  - Wheelchair user [Unknown]
  - Decreased appetite [Unknown]
  - Loss of consciousness [Unknown]
  - Disturbance in attention [Unknown]
  - Spinal cord injury [Unknown]
  - Mobility decreased [Unknown]
  - Road traffic accident [Unknown]
  - Gait inability [Unknown]
  - Drug dependence [Unknown]
  - Hypoaesthesia [Unknown]
  - Personality change [Unknown]

NARRATIVE: CASE EVENT DATE: 2004
